FAERS Safety Report 6234335-7 (Version None)
Quarter: 2009Q2

REPORT INFORMATION
  Report Type: 
  Country: None (occurrence: None)
  Receive Date: 20090615
  Receipt Date: 20090602
  Transmission Date: 20091009
  Serious: Yes (Other)
  Sender: FDA-Public Use
  Company Number: 2007-03399

PATIENT
  Age: 45 Year
  Sex: Female
  Weight: 64 kg

DRUGS (7)
  1. VELCADE [Suspect]
     Indication: MULTIPLE MYELOMA
     Dosage: 2.3 MG, INTRAVENOUS
     Route: 042
     Dates: start: 20070517, end: 20070730
  2. DEXAMETHASONE [Concomitant]
  3. FAMOTIDINE [Concomitant]
  4. BAKTAR (SULFAMETHOXAZOLE, TRIMETHORPIM) [Concomitant]
  5. BIOFERMIN R (STREPTOCOCCUS FAECALIS) [Concomitant]
  6. GLUMIN (GLUTAMIC ACID) [Concomitant]
  7. GASLON (IRSOGLADINE MALEATE) [Concomitant]

REACTIONS (9)
  - ALANINE AMINOTRANSFERASE INCREASED [None]
  - ANAEMIA [None]
  - ASPARTATE AMINOTRANSFERASE INCREASED [None]
  - HYPERCHLORAEMIA [None]
  - HYPOAESTHESIA [None]
  - HYPOTENSION [None]
  - NAUSEA [None]
  - PYREXIA [None]
  - WHITE BLOOD CELL COUNT DECREASED [None]
